FAERS Safety Report 8287129-5 (Version None)
Quarter: 2012Q2

REPORT INFORMATION
  Report Type: 
  Country: None (occurrence: None)
  Receive Date: 20120416
  Receipt Date: 20120412
  Transmission Date: 20120825
  Serious: Yes (Life-Threatening)
  Sender: FDA-Public Use
  Company Number: US-ASTRAZENECA-2012SE19206

PATIENT
  Age: 73 Year
  Sex: Male

DRUGS (6)
  1. LORAZEPAM [Concomitant]
     Indication: ANXIETY
     Dosage: DAILY DOSAGE: 2 MG/ML
  2. FLOMAX [Concomitant]
     Indication: BENIGN PROSTATIC HYPERPLASIA
     Route: 048
  3. PROSCAR [Concomitant]
     Indication: BENIGN PROSTATIC HYPERPLASIA
     Route: 048
  4. SYNTHROID [Concomitant]
     Indication: HYPOTHYROIDISM
     Route: 048
  5. PROCHLORPERAZINE MALEATE [Concomitant]
     Indication: NAUSEA
     Route: 048
  6. VANDETANIB [Suspect]
     Indication: THYROID CANCER
     Route: 048
     Dates: start: 20120229, end: 20120403

REACTIONS (10)
  - COUGH [None]
  - DIZZINESS [None]
  - DYSPNOEA [None]
  - ATRIOVENTRICULAR BLOCK [None]
  - MEMORY IMPAIRMENT [None]
  - FATIGUE [None]
  - ELECTROCARDIOGRAM QT PROLONGED [None]
  - NAUSEA [None]
  - DIARRHOEA [None]
  - DERMATITIS ACNEIFORM [None]
